FAERS Safety Report 14315473 (Version 3)
Quarter: 2018Q4

REPORT INFORMATION
  Report Type: Spontaneous
  Country: DE (occurrence: DE)
  Receive Date: 20171221
  Receipt Date: 20181002
  Transmission Date: 20190204
  Serious: Yes (Other)
  Sender: FDA-Public Use
  Company Number: DE-OTSUKA-2017_026818

PATIENT
  Age: 59 Year
  Sex: Female

DRUGS (18)
  1. AMISULPRIDE [Suspect]
     Active Substance: AMISULPRIDE
     Indication: NERVOUS SYSTEM DISORDER
     Dosage: UP TO 400 MG/DAY, UNK
     Route: 065
     Dates: start: 20160101, end: 20160901
  2. QUETIAPINE FUMARATE. [Suspect]
     Active Substance: QUETIAPINE FUMARATE
     Indication: HASHIMOTO^S ENCEPHALOPATHY
  3. ARIPIPRAZOLE. [Suspect]
     Active Substance: ARIPIPRAZOLE
     Indication: NERVOUS SYSTEM DISORDER
     Dosage: 15 MG, QD
     Route: 065
     Dates: start: 20160101, end: 20160901
  4. ARIPIPRAZOLE. [Suspect]
     Active Substance: ARIPIPRAZOLE
     Indication: HASHIMOTO^S ENCEPHALOPATHY
  5. AMISULPRIDE [Suspect]
     Active Substance: AMISULPRIDE
     Indication: HASHIMOTO^S ENCEPHALOPATHY
  6. LORAZEPAM. [Suspect]
     Active Substance: LORAZEPAM
     Indication: HASHIMOTO^S ENCEPHALOPATHY
  7. RISPERIDONE. [Suspect]
     Active Substance: RISPERIDONE
     Indication: NERVOUS SYSTEM DISORDER
     Dosage: 4 MG, QD
     Route: 065
     Dates: start: 20160101, end: 20160901
  8. RISPERIDONE. [Suspect]
     Active Substance: RISPERIDONE
     Indication: HASHIMOTO^S ENCEPHALOPATHY
  9. FLUPENTIXOL [Suspect]
     Active Substance: FLUPENTIXOL
     Indication: HASHIMOTO^S ENCEPHALOPATHY
  10. CITALOPRAM [Suspect]
     Active Substance: CITALOPRAM HYDROBROMIDE
     Indication: DEPRESSION
     Dosage: 20 MG, QD
     Route: 065
     Dates: start: 20160101, end: 20160901
  11. METHYLPREDNISOLONE. [Suspect]
     Active Substance: METHYLPREDNISOLONE
     Indication: HASHIMOTO^S ENCEPHALOPATHY
  12. CITALOPRAM [Suspect]
     Active Substance: CITALOPRAM HYDROBROMIDE
     Indication: HASHIMOTO^S ENCEPHALOPATHY
  13. VENLAFAXINE HYDROCHLORIDE. [Suspect]
     Active Substance: VENLAFAXINE HYDROCHLORIDE
     Indication: HASHIMOTO^S ENCEPHALOPATHY
  14. METHYLPREDNISOLONE. [Suspect]
     Active Substance: METHYLPREDNISOLONE
     Indication: AUTOIMMUNE THYROIDITIS
     Dosage: 5 MG X 500 MG FOR FIVE CONSECUTIVE DAYS
     Route: 065
     Dates: start: 20160101, end: 20160901
  15. VENLAFAXINE HYDROCHLORIDE. [Suspect]
     Active Substance: VENLAFAXINE HYDROCHLORIDE
     Indication: DEPRESSION
     Dosage: 150 MG, QD
     Route: 065
     Dates: start: 20160101, end: 20160901
  16. LORAZEPAM. [Suspect]
     Active Substance: LORAZEPAM
     Indication: ANXIETY
     Dosage: 5 MG, QD
     Route: 065
     Dates: start: 20160101, end: 20160901
  17. FLUPENTIXOL [Suspect]
     Active Substance: FLUPENTIXOL
     Indication: NERVOUS SYSTEM DISORDER
     Dosage: 1.5 MG, QD
     Route: 065
     Dates: start: 2016, end: 201609
  18. QUETIAPINE FUMARATE. [Suspect]
     Active Substance: QUETIAPINE FUMARATE
     Indication: NERVOUS SYSTEM DISORDER
     Dosage: 200 MG, QD
     Route: 065
     Dates: start: 20160101, end: 20160901

REACTIONS (6)
  - Cognitive disorder [Recovering/Resolving]
  - Treatment failure [Unknown]
  - Drug ineffective [Unknown]
  - Product use in unapproved indication [Unknown]
  - Condition aggravated [Recovering/Resolving]
  - Apathy [Recovering/Resolving]

NARRATIVE: CASE EVENT DATE: 2016
